FAERS Safety Report 25832370 (Version 1)
Quarter: 2025Q3

REPORT INFORMATION
  Report Type: Report from Study
  Country: EU (occurrence: EU)
  Receive Date: 20250922
  Receipt Date: 20250922
  Transmission Date: 20251021
  Serious: Yes (Hospitalization)
  Sender: ABBVIE
  Company Number: EU-ABBVIE-6222373

PATIENT
  Age: 38 Year
  Sex: Female
  Weight: 77.4 kg

DRUGS (5)
  1. UPADACITINIB [Suspect]
     Active Substance: UPADACITINIB
     Indication: Crohn^s disease
     Route: 048
     Dates: start: 20241029, end: 20250113
  2. UPADACITINIB [Suspect]
     Active Substance: UPADACITINIB
     Indication: Crohn^s disease
     Route: 048
     Dates: start: 20250114, end: 20250902
  3. VITAMIN D3 [Concomitant]
     Active Substance: CHOLECALCIFEROL
     Indication: Vitamin D deficiency
     Route: 048
     Dates: start: 20241218
  4. CALCIUM [Concomitant]
     Active Substance: CALCIUM
     Indication: Vitamin D deficiency
     Route: 048
     Dates: start: 2020, end: 20241217
  5. CALCIUM [Concomitant]
     Active Substance: CALCIUM
     Indication: Vitamin D deficiency
     Route: 048
     Dates: start: 2020, end: 20241217

REACTIONS (1)
  - Colon dysplasia [Not Recovered/Not Resolved]

NARRATIVE: CASE EVENT DATE: 20250213
